FAERS Safety Report 9249268 (Version 1)
Quarter: 2013Q2

REPORT INFORMATION
  Report Type: Spontaneous
  Country: US (occurrence: US)
  Receive Date: 20130423
  Receipt Date: 20130423
  Transmission Date: 20140414
  Serious: Yes (Other)
  Sender: FDA-Public Use
  Company Number: US-PFIZER INC-2013124205

PATIENT
  Age: 42 Year
  Sex: Female
  Weight: 58.96 kg

DRUGS (5)
  1. GEODON [Suspect]
     Dosage: UNK
  2. TEGRETOL [Suspect]
     Indication: BIPOLAR DISORDER
     Dosage: UNK
     Dates: start: 201009
  3. TRILEPTAL [Suspect]
     Indication: BIPOLAR DISORDER
     Dosage: 600 MG, DAILY
  4. RISPERDAL [Suspect]
     Dosage: UNK
  5. ZYPREXA [Suspect]
     Dosage: UNK

REACTIONS (2)
  - Road traffic accident [Unknown]
  - Blood test abnormal [Unknown]
